FAERS Safety Report 24980667 (Version 4)
Quarter: 2025Q4

REPORT INFORMATION
  Report Type: Spontaneous
  Country: US (occurrence: US)
  Receive Date: 20250218
  Receipt Date: 20251002
  Transmission Date: 20260118
  Serious: Yes (Other)
  Sender: BAYER HEALTHCARE PHARMACEUTICALS INC.
  Company Number: US-BAYER-2025A021315

PATIENT
  Age: 38 Year
  Sex: Male

DRUGS (4)
  1. JIVI [Suspect]
     Active Substance: DAMOCTOCOG ALFA PEGOL
     Dosage: 3518 UNITS/ INFUSE 3500 UNITS (+/-10%) TWO TIMES PER
  2. JIVI [Suspect]
     Active Substance: DAMOCTOCOG ALFA PEGOL
     Dosage: 1 DOSE
     Dates: start: 20250206, end: 20250206
  3. JIVI [Suspect]
     Active Substance: DAMOCTOCOG ALFA PEGOL
     Dosage: JIVI 3280 UNITS/INFUSE 3500 IU, Q2WK
  4. JIVI [Suspect]
     Active Substance: DAMOCTOCOG ALFA PEGOL
     Dosage: JIVI 3383 UNITS/INFUSE 3500 IU

REACTIONS (8)
  - Post procedural haemorrhage [Recovered/Resolved]
  - Tooth extraction [None]
  - Hypertension [None]
  - Hypertension [None]
  - Product dose omission in error [None]
  - Product dose omission in error [None]
  - Product dose omission issue [None]
  - Therapy interrupted [None]

NARRATIVE: CASE EVENT DATE: 20240222
